FAERS Safety Report 9580734 (Version 5)
Quarter: 2014Q2

REPORT INFORMATION
  Report Type: Spontaneous
  Country: US (occurrence: US)
  Receive Date: 20131002
  Receipt Date: 20140508
  Transmission Date: 20141212
  Serious: Yes (Hospitalization, Other)
  Sender: FDA-Public Use
  Company Number: US-009507513-1203USA01169

PATIENT
  Sex: Female

DRUGS (3)
  1. FOSAMAX [Suspect]
     Indication: OSTEOPOROSIS
     Dosage: 70 MG, QW
     Route: 048
     Dates: start: 199808, end: 200701
  2. FOSAMAX PLUS D [Suspect]
     Indication: OSTEOPOROSIS
     Dosage: 2400 MG, UNK
     Route: 048
     Dates: start: 200701, end: 201106
  3. FOSAMAX PLUS D [Suspect]
     Dosage: 70 MG-2800 IU
     Route: 048
     Dates: start: 200701, end: 201106

REACTIONS (96)
  - Femur fracture [Unknown]
  - Intramedullary rod insertion [Unknown]
  - Intramedullary rod insertion [Unknown]
  - Rotator cuff repair [Unknown]
  - Rotator cuff repair [Unknown]
  - Rotator cuff repair [Unknown]
  - Femoral neck fracture [Unknown]
  - Mitral valve prolapse [Unknown]
  - Knee arthroplasty [Unknown]
  - Knee arthroplasty [Unknown]
  - Medical device removal [Unknown]
  - Incisional drainage [Unknown]
  - Debridement [Unknown]
  - Wound infection staphylococcal [Unknown]
  - Cellulitis [Unknown]
  - Incisional drainage [Unknown]
  - Vocal cord thickening [Unknown]
  - Tendon operation [Unknown]
  - Mitral valve replacement [Unknown]
  - Coronary artery bypass [Unknown]
  - Humerus fracture [Unknown]
  - Dehydration [Unknown]
  - Dysphagia [Recovering/Resolving]
  - Laryngitis [Recovering/Resolving]
  - Femur fracture [Not Recovered/Not Resolved]
  - Tendon sheath incision [Unknown]
  - Stress fracture [Unknown]
  - Foot fracture [Recovering/Resolving]
  - Foot fracture [Unknown]
  - Tendon sheath incision [Unknown]
  - Upper limb fracture [Unknown]
  - Radial nerve compression [Unknown]
  - Groin pain [Unknown]
  - Vitamin D deficiency [Unknown]
  - Low turnover osteopathy [Unknown]
  - Haemorrhagic anaemia [Recovered/Resolved]
  - Fracture [Unknown]
  - Gastrointestinal disorder [Unknown]
  - Ecchymosis [Unknown]
  - Hyperlipidaemia [Unknown]
  - Hypothyroidism [Unknown]
  - Hypertension [Unknown]
  - International normalised ratio increased [Recovered/Resolved]
  - Osteoarthritis [Unknown]
  - Urinary incontinence [Unknown]
  - Gastric banding [Unknown]
  - Pain [Not Recovered/Not Resolved]
  - Depression [Unknown]
  - Osteoarthritis [Unknown]
  - Foot fracture [Recovering/Resolving]
  - Foot fracture [Unknown]
  - Foot fracture [Unknown]
  - Bursitis [Unknown]
  - Fall [Unknown]
  - Radius fracture [Unknown]
  - Foot fracture [Unknown]
  - Arthritis [Unknown]
  - Synovial cyst [Unknown]
  - Muscle strain [Unknown]
  - Radiculopathy [Unknown]
  - Exostosis [Unknown]
  - Nasal septum deviation [Unknown]
  - Osteoarthritis [Unknown]
  - Foot fracture [Unknown]
  - Contusion [Unknown]
  - Arthritis [Unknown]
  - Cardiac failure congestive [Unknown]
  - Restless legs syndrome [Unknown]
  - Bacterial disease carrier [Unknown]
  - Skin ulcer [Unknown]
  - Localised infection [Unknown]
  - Muscular weakness [Unknown]
  - Hypoaesthesia [Unknown]
  - Thoracic vertebral fracture [Unknown]
  - Intervertebral disc degeneration [Unknown]
  - Facet joint syndrome [Unknown]
  - Rotator cuff syndrome [Unknown]
  - Spinal column stenosis [Unknown]
  - Fracture nonunion [Unknown]
  - Scapula fracture [Unknown]
  - Gamma-glutamyltransferase increased [Unknown]
  - Inflammation [Unknown]
  - Arteriosclerosis coronary artery [Unknown]
  - Spinal osteoarthritis [Unknown]
  - C-reactive protein increased [Unknown]
  - Pain in extremity [Unknown]
  - Pain in extremity [Unknown]
  - Oedema peripheral [Unknown]
  - Drug ineffective [Unknown]
  - Arthralgia [Unknown]
  - Arthralgia [Unknown]
  - Arthralgia [Unknown]
  - Gastrooesophageal reflux disease [Unknown]
  - Muscle spasms [Unknown]
  - Diarrhoea [Recovered/Resolved]
  - Back pain [Not Recovered/Not Resolved]
